FAERS Safety Report 7294855-3 (Version None)
Quarter: 2011Q1

REPORT INFORMATION
  Report Type: 
  Country: None (occurrence: None)
  Receive Date: 20110216
  Receipt Date: 20040213
  Transmission Date: 20110831
  Serious: Yes (Other)
  Sender: FDA-Public Use
  Company Number: US-JNJFOC-20031200799

PATIENT
  Sex: Female
  Weight: 91.63 kg

DRUGS (1)
  1. PROPULSID [Suspect]
     Indication: GASTROOESOPHAGEAL REFLUX DISEASE
     Dosage: 30 MINUTES BEFORE MEALS AND AT BEDTIME
     Route: 065

REACTIONS (2)
  - HEART VALVE INCOMPETENCE [None]
  - CHEST PAIN [None]
